FAERS Safety Report 10738320 (Version 1)
Quarter: 2015Q1

REPORT INFORMATION
  Report Type: Report from Study
  Country: US (occurrence: US)
  Receive Date: 20150126
  Receipt Date: 20150126
  Transmission Date: 20150721
  Serious: Yes (Hospitalization)
  Sender: FDA-Public Use
  Company Number: US-BRISTOL-MYERS SQUIBB COMPANY-20593679

PATIENT
  Age: 57 Year
  Sex: Male

DRUGS (8)
  1. BLINDED PACLITAXEL [Suspect]
     Active Substance: PACLITAXEL
     Indication: NON-SMALL CELL LUNG CANCER
     Dosage: LAST DOSE 08JAN2014
     Route: 042
     Dates: start: 20130927, end: 20140108
  2. PLACEBO [Suspect]
     Active Substance: UNSPECIFIED INGREDIENT
     Indication: NON-SMALL CELL LUNG CANCER
     Dosage: LAST DOSE 08JAN2014
     Route: 042
     Dates: start: 20130927, end: 20140108
  3. BLINDED IPILIMUMAB [Suspect]
     Active Substance: IPILIMUMAB
     Indication: NON-SMALL CELL LUNG CANCER
     Dosage: LAST DOSE 08JAN2014
     Route: 042
     Dates: start: 20130927, end: 20140108
  4. PLACEBO [Suspect]
     Active Substance: UNSPECIFIED INGREDIENT
     Indication: NON-SMALL CELL LUNG CANCER
     Dosage: LAST DOSE 08JAN2014
     Route: 042
     Dates: start: 20130927, end: 20140108
  5. PLACEBO [Suspect]
     Active Substance: UNSPECIFIED INGREDIENT
     Indication: NON-SMALL CELL LUNG CANCER
     Dosage: 885 MG, UNK
     Route: 042
     Dates: start: 20131108, end: 20140312
  6. BLINDED CARBOPLATIN [Suspect]
     Active Substance: CARBOPLATIN
     Indication: NON-SMALL CELL LUNG CANCER
     Dosage: LAST DOSE 08JAN2014
     Route: 042
     Dates: start: 20130927, end: 20140108
  7. BLINDED IPILIMUMAB [Suspect]
     Active Substance: IPILIMUMAB
     Indication: NON-SMALL CELL LUNG CANCER
     Dosage: LAST DOSE 08JAN2014
     Route: 042
     Dates: start: 20130927, end: 20140108
  8. BLINDED IPILIMUMAB [Suspect]
     Active Substance: IPILIMUMAB
     Indication: NON-SMALL CELL LUNG CANCER
     Dosage: 885 MG, UNK
     Route: 042
     Dates: start: 20131108, end: 20140312

REACTIONS (2)
  - Diarrhoea [Recovered/Resolved with Sequelae]
  - Dehydration [Recovered/Resolved]

NARRATIVE: CASE EVENT DATE: 20140401
